FAERS Safety Report 14085683 (Version 1)
Quarter: 2017Q4

REPORT INFORMATION
  Report Type: Report from Study
  Country: IT (occurrence: IT)
  Receive Date: 20171013
  Receipt Date: 20171013
  Transmission Date: 20180321
  Serious: Yes (Other)
  Sender: FDA-Public Use
  Company Number: IT-TEVA-807534ACC

PATIENT
  Age: 55 Year
  Sex: Male
  Weight: 75 kg

DRUGS (6)
  1. CALCIO LEVOFOLINATO TEVA - 100 MG POLVERE PER SOLUZIONE PER INFUSIONE [Suspect]
     Active Substance: LEVOLEUCOVORIN CALCIUM
     Indication: ADENOCARCINOMA OF COLON
     Dosage: POWDER AND SOLVENT FOR SOLUTION FOR INFUSION, 200 MG/M2 CYCLICAL
     Route: 042
     Dates: start: 20161209, end: 20170203
  2. OXALIPLATINO ACCORD - ACCORD HEALTHCARE LIMITED [Suspect]
     Active Substance: OXALIPLATIN
     Indication: ADENOCARCINOMA OF COLON
     Dosage: CONCENTRATE FOR SOLUTION FOR INFUSION, 85 MG/M2 CYCLICAL
     Route: 042
     Dates: start: 20161209, end: 20170120
  3. CREON - 10.000 U.PH.EUR. CAPSULE RIGIDE A RILASCIO MODIFICATO BGP PROD [Concomitant]
     Indication: PRODUCT USED FOR UNKNOWN INDICATION
  4. FLUOROURACILE TEVA - 1 G/20 ML SOLUZIONE PER INFUSIONE [Suspect]
     Active Substance: FLUOROURACIL
     Indication: ADENOCARCINOMA OF COLON
     Dosage: CONCENTRATE FOR SOLUTION FOR INFUSION, 3648 MG CYCLICAL
     Route: 041
     Dates: start: 20161209, end: 20170203
  5. FLUOROURACILE TEVA - 5 G/100 ML SOLUZIONE PER INFUSIONE [Suspect]
     Active Substance: FLUOROURACIL
     Indication: ADENOCARCINOMA OF COLON
     Dosage: CONCENTRATE FOR SOLUTION FOR INFUSION, 608 MG CYCLICAL
     Route: 040
     Dates: start: 20161209, end: 20170203
  6. OMEPRAZEN - 20 MG CAPSULE RIGIDE GASTRORESISTENTI MALESCI ISTITUTO FRM [Concomitant]
     Indication: PRODUCT USED FOR UNKNOWN INDICATION

REACTIONS (1)
  - Neurotoxicity [Unknown]

NARRATIVE: CASE EVENT DATE: 20170121
